FAERS Safety Report 4552748-6 (Version None)
Quarter: 2005Q1

REPORT INFORMATION
  Report Type: 
  Country: None (occurrence: None)
  Receive Date: 20050112
  Receipt Date: 20050106
  Transmission Date: 20050727
  Serious: Yes (Death)
  Sender: FDA-Public Use
  Company Number: USA-2005-0018258

PATIENT
  Sex: Male

DRUGS (2)
  1. OXYCONTIN [Suspect]
  2. PERCOCET [Concomitant]

REACTIONS (2)
  - MALNUTRITION [None]
  - POST PROCEDURAL COMPLICATION [None]
